FAERS Safety Report 6240511-X (Version None)
Quarter: 2009Q2

REPORT INFORMATION
  Report Type: 
  Country: None (occurrence: None)
  Receive Date: 20090623
  Receipt Date: 20090408
  Transmission Date: 20091009
  Serious: No
  Sender: FDA-Public Use
  Company Number: US-ASTRAZENECA-2009UW08815

PATIENT
  Age: 74 Year
  Sex: Female
  Weight: 64.9 kg

DRUGS (7)
  1. PULMICORT FLEXHALER [Suspect]
     Indication: ASTHMA
     Dosage: 90 UG 2 PUFFS
     Route: 055
     Dates: start: 20090313
  2. NEXIUM [Suspect]
     Indication: DYSPEPSIA
     Route: 048
  3. PROAIR HFA [Concomitant]
  4. HYZAAR [Concomitant]
  5. LIPITOR [Concomitant]
  6. SERTRALINE [Concomitant]
  7. TYLENOL (CAPLET) [Concomitant]

REACTIONS (1)
  - INFLUENZA [None]
